FAERS Safety Report 17809665 (Version 5)
Quarter: 2022Q1

REPORT INFORMATION
  Report Type: Report from Study
  Country: US (occurrence: US)
  Receive Date: 20200520
  Receipt Date: 20220106
  Transmission Date: 20220423
  Serious: Yes (Hospitalization, Other)
  Sender: FDA-Public Use
  Company Number: NVSC2020US138383

PATIENT
  Sex: Female

DRUGS (1)
  1. ENTRESTO [Suspect]
     Active Substance: SACUBITRIL\VALSARTAN
     Indication: Product used for unknown indication
     Dosage: UNK
     Route: 048
     Dates: start: 2017

REACTIONS (8)
  - COVID-19 [Unknown]
  - Asthenia [Not Recovered/Not Resolved]
  - Lung disorder [Unknown]
  - Weight decreased [Unknown]
  - Headache [Unknown]
  - Hypersensitivity [Unknown]
  - Respiratory tract congestion [Unknown]
  - Cough [Unknown]
